FAERS Safety Report 4941336-5 (Version None)
Quarter: 2006Q1

REPORT INFORMATION
  Report Type: 
  Country: None (occurrence: None)
  Receive Date: 20060313
  Receipt Date: 20050913
  Transmission Date: 20060701
  Serious: Yes (Other)
  Sender: FDA-Public Use
  Company Number: US-MERCK-0509USA01819

PATIENT
  Age: 50 Year
  Sex: Female
  Weight: 98 kg

DRUGS (7)
  1. ATENOLOL [Concomitant]
     Route: 065
  2. HYDROCHLOROTHIAZIDE [Concomitant]
     Route: 065
  3. SYNTHROID [Concomitant]
     Route: 065
  4. PREMARIN [Concomitant]
     Route: 065
  5. PREVACID [Concomitant]
     Route: 065
  6. NEURONTIN [Concomitant]
     Route: 065
  7. VIOXX [Suspect]
     Indication: NECK INJURY
     Route: 048
     Dates: start: 20010201, end: 20040401

REACTIONS (15)
  - ABDOMINAL PAIN UPPER [None]
  - ANGINA PECTORIS [None]
  - BOWEL MOVEMENT IRREGULARITY [None]
  - CERVICOGENIC HEADACHE [None]
  - CHEST PAIN [None]
  - CHRONIC PAROXYSMAL HEMICRANIA [None]
  - COUGH [None]
  - DRUG INEFFECTIVE [None]
  - GASTROOESOPHAGEAL REFLUX DISEASE [None]
  - HAEMATEMESIS [None]
  - MUSCLE SPASMS [None]
  - MYOCARDIAL ISCHAEMIA [None]
  - NON-CARDIAC CHEST PAIN [None]
  - OESOPHAGEAL STENOSIS [None]
  - PALPITATIONS [None]
